FAERS Safety Report 23698249 (Version 2)
Quarter: 2024Q2

REPORT INFORMATION
  Report Type: Spontaneous
  Country: US (occurrence: US)
  Receive Date: 20240402
  Receipt Date: 20240402
  Transmission Date: 20240716
  Serious: No
  Sender: FDA-Public Use
  Company Number: US-THEA-2023001337

PATIENT
  Age: 77 Year
  Sex: Female

DRUGS (1)
  1. ZIOPTAN [Suspect]
     Active Substance: TAFLUPROST
     Indication: Glaucoma
     Dosage: BOTH EYES EVERY NIGHT
     Route: 047
     Dates: start: 202211

REACTIONS (3)
  - Vision blurred [Unknown]
  - Diplopia [Unknown]
  - Brain fog [Unknown]

NARRATIVE: CASE EVENT DATE: 20230717
